FAERS Safety Report 10560235 (Version 6)
Quarter: 2015Q1

REPORT INFORMATION
  Report Type: Report from Study
  Country: US (occurrence: US)
  Receive Date: 20141103
  Receipt Date: 20150113
  Transmission Date: 20150720
  Serious: Yes (Hospitalization)
  Sender: FDA-Public Use
  Company Number: US-JNJFOC-20141019835

PATIENT
  Age: 51 Year
  Sex: Female
  Weight: 73.03 kg

DRUGS (20)
  1. MEGACE [Concomitant]
     Active Substance: MEGESTROL ACETATE
  2. MIRALAX [Concomitant]
     Active Substance: POLYETHYLENE GLYCOL 3350
  3. OXYCODONE [Concomitant]
     Active Substance: OXYCODONE
  4. SOFOSBUVIR [Suspect]
     Active Substance: SOFOSBUVIR
     Indication: HEPATITIS C
     Route: 048
     Dates: start: 20140124, end: 20140411
  5. PREDNISONE. [Concomitant]
     Active Substance: PREDNISONE
  6. SIMEPREVIR [Suspect]
     Active Substance: SIMEPREVIR
     Indication: HEPATITIS C
     Route: 048
     Dates: start: 20140124, end: 20140411
  7. BACTRIM [Concomitant]
     Active Substance: SULFAMETHOXAZOLE\TRIMETHOPRIM
  8. VALCYTE [Concomitant]
     Active Substance: VALGANCICLOVIR HYDROCHLORIDE
  9. PRILOSEC [Concomitant]
     Active Substance: OMEPRAZOLE MAGNESIUM
  10. PROGRAF [Concomitant]
     Active Substance: TACROLIMUS\TACROLIMUS ANHYDROUS
  11. WARFARIN [Concomitant]
     Active Substance: WARFARIN
  12. NYSTATIN. [Concomitant]
     Active Substance: NYSTATIN
  13. CALCIUM CARBONATE. [Concomitant]
     Active Substance: CALCIUM CARBONATE
  14. FISH OIL [Concomitant]
     Active Substance: FISH OIL
  15. CELLCEPT [Concomitant]
     Active Substance: MYCOPHENOLATE MOFETIL\MYCOPHENOLATE MOFETIL HYDROCHLORIDE
  16. COLACE [Concomitant]
     Active Substance: DOCUSATE SODIUM
  17. SENNA [Concomitant]
     Active Substance: SENNA LEAF\SENNOSIDES\SENNOSIDES A AND B
  18. VITAMIN D [Concomitant]
     Active Substance: CHOLECALCIFEROL
  19. MULTIVITAMINS [Concomitant]
     Active Substance: VITAMINS
  20. COENZYME Q [Concomitant]

REACTIONS (2)
  - Liver function test abnormal [Recovered/Resolved]
  - Hepatic enzyme increased [Recovered/Resolved]

NARRATIVE: CASE EVENT DATE: 20140124
